FAERS Safety Report 7652621-0 (Version None)
Quarter: 2011Q3

REPORT INFORMATION
  Report Type: 
  Country: None (occurrence: None)
  Receive Date: 20110728
  Receipt Date: 20110720
  Transmission Date: 20111222
  Serious: Yes (Hospitalization, Other)
  Sender: FDA-Public Use
  Company Number: ACO_25126_2011

PATIENT
  Age: 30 Year
  Sex: Female

DRUGS (5)
  1. KLONOPIN [Concomitant]
  2. TYSABRI [Concomitant]
  3. AMPYRA [Suspect]
     Indication: PRODUCT USED FOR UNKNOWN INDICATION
     Dosage: 10 MG, Q 12 HRS, ORAL ; 10 MG, ORAL
     Route: 048
     Dates: start: 20101001, end: 20110606
  4. AMPYRA [Suspect]
     Indication: PRODUCT USED FOR UNKNOWN INDICATION
     Dosage: 10 MG, Q 12 HRS, ORAL ; 10 MG, ORAL
     Route: 048
     Dates: start: 20100510, end: 20100901
  5. BACLOFEN [Concomitant]

REACTIONS (6)
  - OVERDOSE [None]
  - FALL [None]
  - CONVULSION [None]
  - MULTIPLE SCLEROSIS [None]
  - DIZZINESS [None]
  - CONDITION AGGRAVATED [None]
